FAERS Safety Report 6233520-8 (Version None)
Quarter: 2009Q2

REPORT INFORMATION
  Report Type: 
  Country: None (occurrence: None)
  Receive Date: 20090617
  Receipt Date: 20090605
  Transmission Date: 20091009
  Serious: Yes (Other)
  Sender: FDA-Public Use
  Company Number: PHHY2009FR22159

PATIENT
  Age: 58 Year
  Sex: Male

DRUGS (3)
  1. COTAREG [Suspect]
     Dosage: 80 MG/12.5 MG
  2. TAHOR [Concomitant]
  3. AVANDAMET [Concomitant]

REACTIONS (2)
  - BREAST OPERATION [None]
  - GYNAECOMASTIA [None]
